FAERS Safety Report 5956858-8 (Version None)
Quarter: 2008Q4

REPORT INFORMATION
  Report Type: 
  Country: None (occurrence: None)
  Receive Date: 20081118
  Receipt Date: 20081110
  Transmission Date: 20090506
  Serious: Yes (Other)
  Sender: FDA-Public Use
  Company Number: US-ABBOTT-08P-163-0486760-00

PATIENT
  Sex: Female
  Weight: 106.69 kg

DRUGS (2)
  1. HUMIRA [Suspect]
     Indication: RHEUMATOID ARTHRITIS
     Route: 058
     Dates: start: 20061201, end: 20080202
  2. HUMIRA [Suspect]
     Route: 058
     Dates: start: 20080723

REACTIONS (5)
  - ECZEMA [None]
  - HYPERTENSION [None]
  - SINUS HEADACHE [None]
  - SINUSITIS [None]
  - UTERINE LEIOMYOMA [None]
